FAERS Safety Report 9871801 (Version 1)
Quarter: 2014Q1

REPORT INFORMATION
  Report Type: Other
  Country: AT (occurrence: AT)
  Receive Date: 20140205
  Receipt Date: 20140205
  Transmission Date: 20141002
  Serious: Yes (Other)
  Sender: FDA-Public Use
  Company Number: AT-US-EMD SERONO, INC.-7267149

PATIENT
  Age: 9 Year
  Sex: Male

DRUGS (1)
  1. SAIZEN [Suspect]
     Indication: GROWTH RETARDATION

REACTIONS (2)
  - High turnover osteopathy [Unknown]
  - Blood parathyroid hormone increased [Unknown]
